FAERS Safety Report 9384367 (Version 1)
Quarter: 2013Q3

REPORT INFORMATION
  Report Type: Report from Study
  Country: BR (occurrence: BR)
  Receive Date: 20130705
  Receipt Date: 20130705
  Transmission Date: 20140515
  Serious: Yes (Hospitalization, Other)
  Sender: FDA-Public Use
  Company Number: PHHY2013BR070594

PATIENT
  Sex: Female

DRUGS (7)
  1. GALVUS [Suspect]
     Indication: DIABETES MELLITUS
     Dosage: 1 DF, (50 MG) DAILY
     Route: 048
  2. DIOVAN HCT [Suspect]
     Indication: HYPERTENSION
     Dosage: 1 DF, (320/12.5 MG) DAILY
     Route: 048
  3. INSULIN NPH [Concomitant]
     Indication: DIABETES MELLITUS
     Dosage: 35 UL, QD
  4. INSULIN [Concomitant]
     Indication: DIABETES MELLITUS
     Dosage: 10 UL, QD
  5. ENALAPRIL [Concomitant]
     Indication: HYPERTENSION
     Dosage: 1 DF, (5 MG) DAILY
     Route: 048
  6. ALDOMET [Concomitant]
     Indication: HYPERTENSION
     Dosage: 1 DF, (250 MG) DAILY
     Route: 048
  7. AAS [Concomitant]
     Indication: HYPERTENSION
     Dosage: 1 DF, (100 MG) DAILY
     Route: 048

REACTIONS (2)
  - Swelling [Recovering/Resolving]
  - Urinary tract infection [Recovering/Resolving]
